FAERS Safety Report 9977525 (Version 1)
Quarter: 2014Q1

REPORT INFORMATION
  Report Type: Report from Study
  Country: US (occurrence: US)
  Receive Date: 20140306
  Receipt Date: 20140306
  Transmission Date: 20141002
  Serious: No
  Sender: FDA-Public Use
  Company Number: US-ABBVIE-13P-163-1163101-00

PATIENT
  Age: 66 Year
  Sex: Female

DRUGS (8)
  1. HUMIRA [Suspect]
     Indication: CROHN^S DISEASE
     Dates: start: 20130116, end: 201307
  2. DYAZIDE [Concomitant]
     Indication: FLUID RETENTION
     Dosage: 37.5MG/25MG DAILY
  3. CLONAZEPAM [Concomitant]
     Indication: PARTIAL SEIZURES
  4. VICODIN [Concomitant]
     Indication: RESTLESS LEGS SYNDROME
     Dosage: 1/2 VICODIN UNKNOWN DOSE
  5. VICODIN [Concomitant]
     Indication: PAIN
  6. VICODIN [Concomitant]
     Indication: CROHN^S DISEASE
  7. PREDNISONE [Concomitant]
     Indication: PRODUCT USED FOR UNKNOWN INDICATION
  8. OMEPRAZOLE [Concomitant]
     Indication: PRODUCT USED FOR UNKNOWN INDICATION

REACTIONS (1)
  - Basal cell carcinoma [Recovering/Resolving]
